FAERS Safety Report 14082963 (Version 2)
Quarter: 2017Q4

REPORT INFORMATION
  Report Type: Spontaneous
  Country: JP (occurrence: JP)
  Receive Date: 20171012
  Receipt Date: 20171031
  Transmission Date: 20180321
  Serious: Yes (Hospitalization)
  Sender: FDA-Public Use
  Company Number: JP-ALLERGAN-1757390US

PATIENT
  Age: 65 Year
  Sex: Male
  Weight: 63 kg

DRUGS (11)
  1. HALCION [Concomitant]
     Active Substance: TRIAZOLAM
     Dosage: 0.25 MG, BID
     Route: 048
     Dates: start: 20100804
  2. TACROLIMUS MONOHYDRATE [Concomitant]
     Active Substance: TACROLIMUS
     Dosage: UNK
     Dates: start: 2017
  3. FERROMIA [Concomitant]
     Active Substance: SODIUM FERROUS CITRATE
     Dosage: 50 MG, QD
     Route: 048
     Dates: start: 20150331
  4. SIMPONI [Suspect]
     Active Substance: GOLIMUMAB
     Indication: COLITIS ULCERATIVE
     Dosage: 100 MG, QD
     Route: 058
     Dates: start: 20170605, end: 20170718
  5. TAKEPRON [Concomitant]
     Active Substance: LANSOPRAZOLE
     Dosage: 15 MG, QD
     Route: 048
     Dates: start: 20170502
  6. PENTASA [Concomitant]
     Active Substance: MESALAMINE
     Dosage: 2000 MG, BID
     Route: 048
  7. URSODEOXYCHOLIC ACID - BP [Suspect]
     Active Substance: URSODIOL
     Indication: PRODUCT USED FOR UNKNOWN INDICATION
     Dosage: 400 MG, BID
     Route: 048
  8. ADSORBIN [Concomitant]
     Active Substance: ALUMINUM SILICATE
     Dosage: 2 G, QD
     Route: 048
     Dates: start: 20090512
  9. MIYA-BM [Concomitant]
     Active Substance: CLOSTRIDIUM BUTYRICUM SPORES STRAIN M-55
     Dosage: 2 DF, QD
     Route: 048
     Dates: start: 20140819
  10. FEBURIC [Concomitant]
     Active Substance: FEBUXOSTAT
     Dosage: 20 MG, QD
     Route: 048
     Dates: start: 20150105
  11. PAXIL [Concomitant]
     Active Substance: PAROXETINE HYDROCHLORIDE
     Dosage: 10 MG, QD
     Route: 048
     Dates: start: 20101027

REACTIONS (1)
  - Anaemia [Unknown]

NARRATIVE: CASE EVENT DATE: 20170718
